FAERS Safety Report 6868525-7 (Version None)
Quarter: 2010Q3

REPORT INFORMATION
  Report Type: 
  Country: None (occurrence: None)
  Receive Date: 20100722
  Receipt Date: 20080530
  Transmission Date: 20110219
  Serious: No
  Sender: FDA-Public Use
  Company Number: US-PFIZER INC-2008047311

PATIENT
  Sex: Male
  Weight: 106.59 kg

DRUGS (4)
  1. CHANTIX [Suspect]
     Indication: SMOKING CESSATION THERAPY
     Route: 048
     Dates: start: 20080101, end: 20080101
  2. NAPROSYN [Concomitant]
  3. PERCOCET [Concomitant]
  4. NEURONTIN [Concomitant]

REACTIONS (2)
  - ANXIETY [None]
  - NIGHTMARE [None]
